FAERS Safety Report 12834019 (Version 1)
Quarter: 2016Q4

REPORT INFORMATION
  Report Type: Spontaneous
  Country: CH (occurrence: CH)
  Receive Date: 20161010
  Receipt Date: 20161010
  Transmission Date: 20170207
  Serious: Yes (Death, Hospitalization)
  Sender: FDA-Public Use
  Company Number: CH-TEVA-697863ISR

PATIENT
  Age: 84 Year
  Sex: Female

DRUGS (23)
  1. ESOMEPRAZOL SANDOZ [Concomitant]
     Indication: PRODUCT USED FOR UNKNOWN INDICATION
     Dosage: 40 MILLIGRAM DAILY; INITIATION OF THERAPY UNCLEAR AT LEAST SINCE 12-SEP-2015.
     Route: 048
  2. SYMFONA FORTE [Concomitant]
     Indication: PRODUCT USED FOR UNKNOWN INDICATION
     Dosage: 2 DOSAGE FORMS DAILY; INITIATION OF THERAPY UNCLEAR AT LEAST SINCE 08-SEP-2015.
     Route: 048
     Dates: start: 20150908
  3. MAGNESIOCARD [Concomitant]
     Active Substance: MAGNESIUM ASPARTATE HYDROCHLORIDE
     Indication: MUSCLE SPASMS
     Route: 048
  4. MORPHIN [Concomitant]
     Active Substance: MORPHINE
     Indication: PAIN
     Route: 065
  5. UVAMIN [Suspect]
     Active Substance: NITROFURANTOIN
     Indication: CYSTITIS
     Dosage: 100 MILLIGRAM DAILY;
     Route: 048
     Dates: start: 20160518, end: 20160526
  6. UVAMIN [Suspect]
     Active Substance: NITROFURANTOIN
     Dosage: PREVIOUS TREATMENT, DURATION UNKNOWN.
     Route: 065
     Dates: start: 201511
  7. LAMISIL [Concomitant]
     Active Substance: TERBINAFINE HYDROCHLORIDE
     Indication: PRODUCT USED FOR UNKNOWN INDICATION
     Dosage: INITIATION OF THERAPY UNCLEAR AT LEAST SINCE 08-SEP-2015.
     Route: 048
  8. NORFLOXACIN [Concomitant]
     Active Substance: NORFLOXACIN
     Indication: PRODUCT USED FOR UNKNOWN INDICATION
     Dosage: 600 MILLIGRAM DAILY; SPECIFIC PRODUCT UNKNOWN
     Route: 065
     Dates: start: 20160518, end: 20160527
  9. IBEROGAST [Concomitant]
     Active Substance: HERBALS
     Indication: GASTROINTESTINAL DISORDER
     Route: 048
     Dates: start: 20160211
  10. LAXOBERON [Concomitant]
     Active Substance: SODIUM PICOSULFATE
     Indication: CONSTIPATION
     Route: 048
  11. MOTILIUM [Concomitant]
     Active Substance: DOMPERIDONE
     Indication: NAUSEA
     Route: 048
  12. MOTILIUM [Concomitant]
     Active Substance: DOMPERIDONE
     Indication: VOMITING
  13. PRIMPERAN [Concomitant]
     Active Substance: METOCLOPRAMIDE HYDROCHLORIDE
     Indication: PRODUCT USED FOR UNKNOWN INDICATION
     Route: 048
  14. AKINETON [Concomitant]
     Active Substance: BIPERIDEN HYDROCHLORIDE
     Indication: PRODUCT USED FOR UNKNOWN INDICATION
     Dosage: 4 MILLIGRAM DAILY; INITIATION OF THERAPY UNCLEAR AT LEAST SINCE 29-MAY-2014.
     Route: 048
  15. METAMUCIL [Concomitant]
     Active Substance: PLANTAGO SEED
     Indication: PRODUCT USED FOR UNKNOWN INDICATION
     Dosage: 1 DOSAGE FORMS DAILY; INITIATION OF THERAPY UNCLEAR AT LEAST SINCE 08-MAR-2016.
     Route: 065
  16. BELOC ZOK [Concomitant]
     Active Substance: METOPROLOL SUCCINATE
     Indication: PRODUCT USED FOR UNKNOWN INDICATION
     Dosage: 25 MILLIGRAM DAILY; INITIATION OF THERAPY UNCLEAR AT LEAST SINCE 07-SEP-2015.
     Route: 048
  17. OVESTIN [Concomitant]
     Active Substance: ESTRIOL
     Indication: PRODUCT USED FOR UNKNOWN INDICATION
     Dosage: INITIATION OF THERAPY UNCLEAR AT LEAST SINCE 27-NOV-2015.
     Route: 067
  18. RESYL PLUS [Concomitant]
     Active Substance: CODEINE PHOSPHATE\GUAIFENESIN
     Indication: COUGH
     Route: 048
  19. DAFALGAN [Concomitant]
     Active Substance: ACETAMINOPHEN
     Indication: PAIN
     Route: 065
  20. ECOFENAC [Concomitant]
     Active Substance: DICLOFENAC SODIUM
     Indication: BACK PAIN
     Route: 061
     Dates: start: 20140619
  21. XARELTO [Concomitant]
     Active Substance: RIVAROXABAN
     Indication: PRODUCT USED FOR UNKNOWN INDICATION
     Dosage: 10 MILLIGRAM DAILY; INITIATION OF THERAPY UNCLEAR AT LEAST SINCE 29-MAY-2014.
     Route: 048
  22. ZOLPIDEM [Concomitant]
     Active Substance: ZOLPIDEM\ZOLPIDEM TARTRATE
     Indication: SLEEP DISORDER
     Route: 048
  23. CALCIMAGON D3 [Concomitant]
     Active Substance: CALCIUM\CHOLECALCIFEROL
     Indication: PRODUCT USED FOR UNKNOWN INDICATION
     Dosage: 1 DOSAGE FORMS DAILY; INITIATION OF THERAPY UNCLEAR AT LEAST SINCE 29-MAY-2014.
     Route: 048

REACTIONS (3)
  - Pulmonary oedema [Not Recovered/Not Resolved]
  - Respiratory failure [Fatal]
  - Dyspnoea [Not Recovered/Not Resolved]

NARRATIVE: CASE EVENT DATE: 20160526
